FAERS Safety Report 16766335 (Version 1)
Quarter: 2019Q3

REPORT INFORMATION
  Report Type: Spontaneous
  Country: BE (occurrence: BE)
  Receive Date: 20190903
  Receipt Date: 20190903
  Transmission Date: 20191005
  Serious: Yes (Hospitalization)
  Sender: FDA-Public Use
  Company Number: BE-HIKMA PHARMACEUTICALS USA INC.-BE-H14001-19-04855

PATIENT
  Age: 68 Year
  Sex: Male
  Weight: 78 kg

DRUGS (5)
  1. IRINOTECAN [Suspect]
     Active Substance: IRINOTECAN
     Indication: COLORECTAL CANCER
     Route: 065
     Dates: start: 20190207, end: 20190327
  2. CETUXIMAB. [Suspect]
     Active Substance: CETUXIMAB
     Route: 042
     Dates: start: 20190307, end: 20190327
  3. CETUXIMAB. [Suspect]
     Active Substance: CETUXIMAB
     Indication: COLORECTAL CANCER
     Route: 042
     Dates: start: 20190207
  4. CETUXIMAB. [Suspect]
     Active Substance: CETUXIMAB
     Route: 042
     Dates: start: 20190404
  5. AVELUMAB [Suspect]
     Active Substance: AVELUMAB
     Indication: COLORECTAL CANCER
     Dates: start: 20190221, end: 20190327

REACTIONS (5)
  - Kidney infection [Recovered/Resolved]
  - Urinary tract infection [Unknown]
  - Enterobacter infection [Unknown]
  - Liver abscess [Recovered/Resolved]
  - Pyrexia [Unknown]

NARRATIVE: CASE EVENT DATE: 20190321
